FAERS Safety Report 7223250-8 (Version None)
Quarter: 2011Q1

REPORT INFORMATION
  Report Type: 
  Country: None (occurrence: None)
  Receive Date: 20110112
  Receipt Date: 20100317
  Transmission Date: 20110831
  Serious: No
  Sender: FDA-Public Use
  Company Number: US-ALLERGAN-1003596US

PATIENT
  Age: 78 Year
  Sex: Female

DRUGS (8)
  1. COSAMINE [Concomitant]
  2. RESTASIS [Suspect]
     Indication: DRY EYE
     Dosage: 1 GTT, BID
  3. ASPIRIN [Concomitant]
  4. FAMOTIDINE [Concomitant]
  5. FOSAMAX [Concomitant]
     Indication: OSTEOARTHRITIS
  6. TAMOXIFEN CITRATE [Concomitant]
     Indication: BREAST CANCER
  7. COZAAR [Concomitant]
     Indication: HYPERTENSION
  8. AMLODIPINE [Concomitant]
     Indication: HYPERTENSION

REACTIONS (2)
  - OCULAR HYPERAEMIA [None]
  - EYE IRRITATION [None]
